FAERS Safety Report 5646688-9 (Version None)
Quarter: 2008Q1

REPORT INFORMATION
  Report Type: 
  Country: None (occurrence: None)
  Receive Date: 20080303
  Receipt Date: 20080220
  Transmission Date: 20080703
  Serious: Yes (Other)
  Sender: FDA-Public Use
  Company Number: US-AMGEN-US266197

PATIENT
  Sex: Female

DRUGS (17)
  1. ARANESP [Suspect]
     Indication: RENAL FAILURE CHRONIC
     Route: 065
     Dates: start: 20071201
  2. GEMFIBROZIL [Concomitant]
  3. NORVASC [Concomitant]
  4. FOLIC ACID [Concomitant]
  5. TOPROL-XL [Concomitant]
  6. ZOLOFT [Concomitant]
  7. LASIX [Concomitant]
  8. HYDRALAZINE HCL [Concomitant]
  9. SODIUM BICARBONATE [Concomitant]
  10. LISINOPRIL [Concomitant]
  11. WARFARIN SODIUM [Concomitant]
  12. ASPIRIN [Concomitant]
  13. AMITRIPTYLINE HCL [Concomitant]
  14. XOPENEX [Concomitant]
  15. LIPITOR [Concomitant]
  16. KAYEXALATE [Concomitant]
  17. GLIMEPIRIDE [Concomitant]

REACTIONS (2)
  - HAEMOGLOBIN DECREASED [None]
  - NORMOCHROMIC NORMOCYTIC ANAEMIA [None]
